FAERS Safety Report 9879151 (Version 1)
Quarter: 2014Q1

REPORT INFORMATION
  Report Type: Spontaneous
  Country: US (occurrence: US)
  Receive Date: 20140206
  Receipt Date: 20140206
  Transmission Date: 20141002
  Serious: No
  Sender: FDA-Public Use
  Company Number: US-ALLERGAN-1313731US

PATIENT
  Sex: Female

DRUGS (1)
  1. BOTOX COSMETIC [Suspect]
     Indication: SKIN WRINKLING

REACTIONS (5)
  - Hypoaesthesia oral [Unknown]
  - Paraesthesia oral [Unknown]
  - Nervousness [Unknown]
  - Chest pain [Unknown]
  - Panic attack [Unknown]
